FAERS Safety Report 4414914-X (Version None)
Quarter: 2004Q3

REPORT INFORMATION
  Report Type: 
  Country: None (occurrence: None)
  Receive Date: 20040729
  Receipt Date: 20040715
  Transmission Date: 20050211
  Serious: Yes (Hospitalization)
  Sender: FDA-Public Use
  Company Number: 200413664BCC

PATIENT
  Age: 73 Year
  Sex: Male

DRUGS (17)
  1. MILK OF MAGNESIA TAB [Suspect]
     Indication: CONSTIPATION
     Dosage: 60 ML, QOD, ORAL
     Route: 048
     Dates: end: 20040712
  2. TOPROL-XL [Concomitant]
  3. PLAVIX [Concomitant]
  4. LIPITOR [Concomitant]
  5. LASIX [Concomitant]
  6. ZOLOFT [Concomitant]
  7. PREVACID [Concomitant]
  8. BERKLEY GENSON BABY ASPIRIN [Concomitant]
  9. ^FOLBEE^ [Concomitant]
  10. FLOMAX [Concomitant]
  11. NITRO PATCH [Concomitant]
  12. ALTACE [Concomitant]
  13. ZETIA [Concomitant]
  14. AVALIDE [Concomitant]
  15. OXYCODONE HCL [Concomitant]
  16. GLUCOSAMINE [Concomitant]
  17. MSM [Concomitant]

REACTIONS (2)
  - BLOOD POTASSIUM INCREASED [None]
  - MYOCARDIAL INFARCTION [None]
